FAERS Safety Report 23086403 (Version 1)
Quarter: 2023Q4

REPORT INFORMATION
  Report Type: Spontaneous
  Country: US (occurrence: US)
  Receive Date: 20231019
  Receipt Date: 20231019
  Transmission Date: 20240110
  Serious: Yes (Death, Life-Threatening, Hospitalization, Other)
  Sender: FDA-Public Use
  Company Number: US-MLMSERVICE-20231005-4584180-1

PATIENT
  Age: 64 Year
  Sex: Male

DRUGS (1)
  1. PREDNISONE [Suspect]
     Active Substance: PREDNISONE
     Indication: Rheumatoid arthritis
     Dosage: UNK
     Route: 065

REACTIONS (8)
  - Anaemia [Fatal]
  - Meningitis pneumococcal [Fatal]
  - Peripheral artery occlusion [Fatal]
  - Peripheral ischaemia [Fatal]
  - Pneumonia pneumococcal [Fatal]
  - Renal injury [Fatal]
  - Shock [Fatal]
  - Streptococcal endocarditis [Fatal]
